FAERS Safety Report 4642864-2 (Version None)
Quarter: 2005Q2

REPORT INFORMATION
  Report Type: 
  Country: None (occurrence: None)
  Receive Date: 20050420
  Receipt Date: 20050404
  Transmission Date: 20051028
  Serious: Yes (Other)
  Sender: FDA-Public Use
  Company Number: EWC041041197

PATIENT
  Age: 80 Year
  Sex: Female
  Weight: 50 kg

DRUGS (5)
  1. FORSTEO (TERIPARATIDE) [Suspect]
     Indication: OSTEOPOROSIS
     Dates: start: 20040921, end: 20041110
  2. LANOXIN (DIGOXIN STREULI) [Concomitant]
  3. ZINADIUR [Concomitant]
  4. METHOTREXATE [Concomitant]
  5. NAPROSYN (NAPROXEN MEPHA) [Concomitant]

REACTIONS (6)
  - BACK PAIN [None]
  - FLUSHING [None]
  - HYPERHIDROSIS [None]
  - MUSCLE SPASMS [None]
  - PALPITATIONS [None]
  - RED BLOOD CELL SEDIMENTATION RATE INCREASED [None]
